FAERS Safety Report 24276502 (Version 1)
Quarter: 2024Q3

REPORT INFORMATION
  Report Type: Spontaneous
  Country: JP (occurrence: JP)
  Receive Date: 20240903
  Receipt Date: 20240903
  Transmission Date: 20241017
  Serious: Yes (Death, Other)
  Sender: ROCHE
  Company Number: JP-CHUGAI-2024029893AA

PATIENT
  Age: 74 Year
  Sex: Male

DRUGS (2)
  1. CELLCEPT [Suspect]
     Active Substance: MYCOPHENOLATE MOFETIL
     Indication: Cholangitis sclerosing
     Dosage: UNK
     Route: 050
  2. PREDNISOLONE [Concomitant]
     Active Substance: PREDNISOLONE
     Indication: Cholangitis sclerosing
     Dosage: UNK
     Route: 065

REACTIONS (7)
  - Multiple organ dysfunction syndrome [Fatal]
  - Disseminated intravascular coagulation [Unknown]
  - Sepsis [Unknown]
  - Cytomegalovirus infection [Unknown]
  - Pseudomonas infection [Unknown]
  - Pancytopenia [Unknown]
  - Off label use [Unknown]
